FAERS Safety Report 8607945-7 (Version None)
Quarter: 2012Q3

REPORT INFORMATION
  Report Type: 
  Country: None (occurrence: None)
  Receive Date: 20120821
  Receipt Date: 20120813
  Transmission Date: 20120928
  Serious: Yes (Other)
  Sender: FDA-Public Use
  Company Number: PE-BRISTOL-MYERS SQUIBB COMPANY-16457392

PATIENT
  Age: 65 Year
  Sex: Female

DRUGS (2)
  1. IXABEPILONE [Suspect]
     Indication: BREAST CANCER
  2. IXABEPILONE [Suspect]
     Indication: METASTASES TO LIVER

REACTIONS (1)
  - NEOPLASM MALIGNANT [None]
